FAERS Safety Report 5327415-1 (Version None)
Quarter: 2007Q2

REPORT INFORMATION
  Report Type: 
  Country: None (occurrence: None)
  Receive Date: 20070517
  Receipt Date: 20070514
  Transmission Date: 20071010
  Serious: Yes (Other)
  Sender: FDA-Public Use
  Company Number: JP-ASTRAZENECA-2007AP02784

PATIENT
  Weight: 110 kg

DRUGS (1)
  1. MEROPENEM [Suspect]
     Route: 042

REACTIONS (2)
  - HAEMORRHAGIC DIATHESIS [None]
  - VITAMIN K DEFICIENCY [None]
